FAERS Safety Report 7689441-7 (Version None)
Quarter: 2011Q3

REPORT INFORMATION
  Report Type: 
  Country: None (occurrence: None)
  Receive Date: 20110811
  Receipt Date: 20110727
  Transmission Date: 20111222
  Serious: Yes (Hospitalization)
  Sender: FDA-Public Use
  Company Number: UTC-009019

PATIENT
  Age: 57 Year
  Sex: Male
  Weight: 120 kg

DRUGS (3)
  1. TYVASO [Suspect]
     Indication: COR PULMONALE CHRONIC
     Dosage: 216 MCG (54 MCG, 4 IN 1 D), INHALATION
     Route: 055
     Dates: start: 20110322
  2. ADCIRCA [Concomitant]
  3. DIURETICS (DIURETICS) [Concomitant]

REACTIONS (6)
  - IRRITABILITY [None]
  - DYSPNOEA [None]
  - MEMORY IMPAIRMENT [None]
  - HAEMORRHAGE [None]
  - DECUBITUS ULCER [None]
  - FLUID RETENTION [None]
